FAERS Safety Report 5524903-X (Version None)
Quarter: 2007Q4

REPORT INFORMATION
  Report Type: 
  Country: None (occurrence: None)
  Receive Date: 20071119
  Receipt Date: 20071108
  Transmission Date: 20080405
  Serious: Yes (Hospitalization)
  Sender: FDA-Public Use
  Company Number: 230353M07USA

PATIENT
  Sex: Female

DRUGS (2)
  1. REBIF [Suspect]
     Indication: MULTIPLE SCLEROSIS
     Dosage: 1 IN 1 MONTHS
     Dates: end: 20071101
  2. TYLENOL [Suspect]

REACTIONS (3)
  - HEPATIC FAILURE [None]
  - OVERDOSE [None]
  - SUICIDE ATTEMPT [None]
